FAERS Safety Report 7359584-6 (Version None)
Quarter: 2011Q1

REPORT INFORMATION
  Report Type: 
  Country: None (occurrence: None)
  Receive Date: 20110317
  Receipt Date: 20100405
  Transmission Date: 20110831
  Serious: No
  Sender: FDA-Public Use
  Company Number: US-PFIZER INC-2010043068

PATIENT
  Age: 70 Year
  Sex: Male
  Weight: 68.027 kg

DRUGS (2)
  1. NORVASC [Suspect]
     Indication: HYPERTENSION
     Dosage: 5 MG, DAILY
     Route: 048
  2. SYNTHROID [Concomitant]
     Indication: THYROID DISORDER
     Dosage: 0.112 MG, 1X/DAY
     Route: 048

REACTIONS (1)
  - CONSTIPATION [None]
